FAERS Safety Report 4736418-7 (Version None)
Quarter: 2005Q3

REPORT INFORMATION
  Report Type: 
  Country: None (occurrence: None)
  Receive Date: 20050804
  Receipt Date: 20050719
  Transmission Date: 20060218
  Serious: Yes (Death, Hospitalization, Other)
  Sender: FDA-Public Use
  Company Number: A-US2003-03412

PATIENT
  Age: 60 Year
  Sex: Male

DRUGS (12)
  1. TRACLEER [Suspect]
     Indication: PULMONARY HYPERTENSION
     Dosage: SEE IMAGE
     Route: 048
     Dates: start: 20030820, end: 20030917
  2. TRACLEER [Suspect]
     Indication: PULMONARY HYPERTENSION
     Dosage: SEE IMAGE
     Route: 048
     Dates: start: 20030917, end: 20030924
  3. TRACLEER [Suspect]
     Indication: PULMONARY HYPERTENSION
     Dosage: SEE IMAGE
     Route: 048
     Dates: start: 20030927
  4. OXYGEN (OXYGEN) [Concomitant]
  5. LASIX [Concomitant]
  6. POTASSIUM CHLORIDE [Concomitant]
  7. NEXIUM [Concomitant]
  8. LEXAPRO [Concomitant]
  9. LORAZEPAM [Concomitant]
  10. KLONOPIN [Concomitant]
  11. PREDNISONE [Concomitant]
  12. NORVASC [Concomitant]

REACTIONS (13)
  - ALANINE AMINOTRANSFERASE DECREASED [None]
  - ASPARTATE AMINOTRANSFERASE INCREASED [None]
  - BLOOD BILIRUBIN INCREASED [None]
  - BLOOD GLUCOSE INCREASED [None]
  - DYSPNOEA EXACERBATED [None]
  - HYPERBILIRUBINAEMIA [None]
  - HYPERGLYCAEMIA [None]
  - NAUSEA [None]
  - PULMONARY HYPERTENSION [None]
  - SARCOIDOSIS [None]
  - SYNCOPE [None]
  - TENDERNESS [None]
  - VOMITING [None]
